FAERS Safety Report 9942329 (Version 1)
Quarter: 2014Q1

REPORT INFORMATION
  Report Type: Spontaneous
  Country: JP (occurrence: JP)
  Receive Date: 20140303
  Receipt Date: 20140303
  Transmission Date: 20141002
  Serious: Yes (Other)
  Sender: FDA-Public Use
  Company Number: JP-009507513-1403JPN000131

PATIENT
  Age: 84 Year
  Sex: Male

DRUGS (5)
  1. JANUVIA TABLETS 100MG [Suspect]
     Indication: TYPE 2 DIABETES MELLITUS
     Dosage: DAILY DOSE UNKNOWN
     Route: 048
  2. GLIMEPIRIDE [Suspect]
     Dosage: 1 MG, DAILY, DIVIDED DOSE FREQUENCY UNKNOWN, FORMULATION: POR
     Route: 048
  3. GLIMEPIRIDE [Suspect]
     Dosage: 0.5 MG, DAILY
     Route: 048
  4. VOGLIBOSE [Concomitant]
     Dosage: 0.9 MG, DAILY, DIVIDED DOSE FREQUENCY UNKNOWN, FORMULATION: POR
     Route: 048
  5. INSULIN [Concomitant]
     Dosage: 8 UNITS IN MORNING, 6 UNITS IN EVENING, DAILY DOSE UNKNOWN

REACTIONS (1)
  - Hypoglycaemia [Recovered/Resolved]
